FAERS Safety Report 4537208-0 (Version None)
Quarter: 2004Q4

REPORT INFORMATION
  Report Type: 
  Country: None (occurrence: None)
  Receive Date: 20041223
  Receipt Date: 20041215
  Transmission Date: 20050328
  Serious: Yes (Other)
  Sender: FDA-Public Use
  Company Number: PHEH2004US13360

PATIENT
  Age: 42 Year
  Sex: Female

DRUGS (3)
  1. ZELNORM [Suspect]
     Indication: ABDOMINAL PAIN UPPER
     Dosage: 6 MG, QD
     Route: 048
     Dates: start: 20041201, end: 20041207
  2. ZELNORM [Suspect]
     Dosage: 6 MG, QD
     Route: 048
     Dates: start: 20041208, end: 20041214
  3. ZELNORM [Suspect]
     Dosage: 6 MG, QD
     Route: 048
     Dates: start: 20041215

REACTIONS (2)
  - DIARRHOEA [None]
  - DIZZINESS [None]
